FAERS Safety Report 25059990 (Version 1)
Quarter: 2025Q1

REPORT INFORMATION
  Report Type: Spontaneous
  Country: US (occurrence: US)
  Receive Date: 20250310
  Receipt Date: 20250310
  Transmission Date: 20250409
  Serious: No
  Sender: AMGEN
  Company Number: US-AMGEN-USASP2025045522

PATIENT
  Age: 66 Year
  Sex: Male

DRUGS (8)
  1. TEPROTUMUMAB [Suspect]
     Active Substance: TEPROTUMUMAB
     Indication: Endocrine ophthalmopathy
     Dosage: UNK MILLIGRAM/KILOGRAM, Q3WK
     Route: 040
  2. METHIMAZOLE [Concomitant]
     Active Substance: METHIMAZOLE
  3. APIXABAN [Concomitant]
     Active Substance: APIXABAN
  4. ATORVASTATIN [Concomitant]
     Active Substance: ATORVASTATIN
  5. GABAPENTIN [Concomitant]
     Active Substance: GABAPENTIN
  6. LOSARTAN [Concomitant]
     Active Substance: LOSARTAN
  7. METOPROLOL SUCCINATE [Concomitant]
     Active Substance: METOPROLOL SUCCINATE
  8. METFORMIN [Concomitant]
     Active Substance: METFORMIN HYDROCHLORIDE

REACTIONS (3)
  - Hyperglycaemia [Unknown]
  - Hypertension [Unknown]
  - Weight decreased [Unknown]
